FAERS Safety Report 13921846 (Version 1)
Quarter: 2017Q3

REPORT INFORMATION
  Report Type: Spontaneous
  Country: GB (occurrence: GB)
  Receive Date: 20170830
  Receipt Date: 20170830
  Transmission Date: 20171127
  Serious: Yes (Other)
  Sender: FDA-Public Use
  Company Number: GB-TEVA-802327ROM

PATIENT
  Age: 75 Year
  Sex: Female

DRUGS (2)
  1. ACITRETIN. [Suspect]
     Active Substance: ACITRETIN
     Indication: PUSTULAR PSORIASIS
     Route: 065
  2. ACITRETIN. [Suspect]
     Active Substance: ACITRETIN
     Route: 065

REACTIONS (1)
  - Immune thrombocytopenic purpura [Unknown]
